FAERS Safety Report 14326335 (Version 3)
Quarter: 2018Q1

REPORT INFORMATION
  Report Type: Report from Study
  Country: None (occurrence: CA)
  Receive Date: 20171227
  Receipt Date: 20180124
  Transmission Date: 20180509
  Serious: Yes (Hospitalization, Other)
  Sender: FDA-Public Use
  Company Number: CA-ABBVIE-17K-028-2203718-00

PATIENT
  Age: 44 Year
  Sex: Female
  Weight: 100 kg

DRUGS (3)
  1. PENICILLIN [Suspect]
     Active Substance: PENICILLIN
     Indication: TOOTH ABSCESS
     Route: 065
     Dates: start: 201711
  2. HUMIRA [Suspect]
     Active Substance: ADALIMUMAB
     Indication: HIDRADENITIS
     Route: 058
     Dates: start: 20170424, end: 2017
  3. PENICILLIN [Suspect]
     Active Substance: PENICILLIN
     Indication: TOOTHACHE

REACTIONS (6)
  - Bacteraemia [Recovered/Resolved]
  - Hidradenitis [Not Recovered/Not Resolved]
  - Skin discolouration [Recovered/Resolved]
  - Swelling face [Recovered/Resolved]
  - Drug hypersensitivity [Unknown]
  - Tooth abscess [Recovered/Resolved]

NARRATIVE: CASE EVENT DATE: 201711
